FAERS Safety Report 8457042-9 (Version None)
Quarter: 2012Q2

REPORT INFORMATION
  Report Type: 
  Country: None (occurrence: None)
  Receive Date: 20120621
  Receipt Date: 20120612
  Transmission Date: 20120825
  Serious: Yes (Hospitalization)
  Sender: FDA-Public Use
  Company Number: JP-ASTRAZENECA-2012SE39833

PATIENT
  Age: 31 Year
  Sex: Male

DRUGS (3)
  1. WARFARIN SODIUM [Concomitant]
     Dosage: 2-5 MG ONCE DAILY
     Route: 048
     Dates: start: 20120528, end: 20120612
  2. CRESTOR [Suspect]
     Route: 048
     Dates: start: 20120529, end: 20120604
  3. OLMESARTAN MEDOXOMIL [Concomitant]
     Route: 048
     Dates: start: 20120528, end: 20120612

REACTIONS (1)
  - HEPATIC FUNCTION ABNORMAL [None]
